FAERS Safety Report 7637130-7 (Version None)
Quarter: 2011Q3

REPORT INFORMATION
  Report Type: 
  Country: None (occurrence: None)
  Receive Date: 20110722
  Receipt Date: 20110722
  Transmission Date: 20111222
  Serious: Yes (Life-Threatening)
  Sender: FDA-Public Use
  Company Number: None

PATIENT
  Sex: Female
  Weight: 57.6068 kg

DRUGS (1)
  1. BONIVA [Suspect]
     Indication: OSTEOPOROSIS PROPHYLAXIS
     Dosage: 150 MG 1 A MONTH ORAL
     Route: 048
     Dates: start: 20110703

REACTIONS (5)
  - BLOOD PRESSURE INCREASED [None]
  - NAUSEA [None]
  - VOMITING [None]
  - DIARRHOEA [None]
  - VERTIGO [None]
